FAERS Safety Report 6968659-2 (Version None)
Quarter: 2010Q3

REPORT INFORMATION
  Report Type: 
  Country: None (occurrence: None)
  Receive Date: 20100907
  Receipt Date: 20100903
  Transmission Date: 20110219
  Serious: Yes (Hospitalization)
  Sender: FDA-Public Use
  Company Number: NL-AMGEN-KDC425113

PATIENT
  Sex: Male
  Weight: 77 kg

DRUGS (8)
  1. NEULASTA [Suspect]
     Indication: LYMPHOMA
     Route: 058
     Dates: start: 20100707
  2. CYCLOPHOSPHAMIDE [Suspect]
     Route: 042
     Dates: start: 20100706
  3. RITUXIMAB [Suspect]
     Route: 042
     Dates: start: 20100706
  4. DOXORUBICIN HCL [Suspect]
     Route: 042
     Dates: start: 20100706
  5. VINCRISTINE [Suspect]
     Route: 042
     Dates: start: 20100706
  6. PREDNISONE [Suspect]
     Route: 048
     Dates: start: 20100706
  7. ACETAMINOPHEN [Concomitant]
     Dates: start: 20100706, end: 20100712
  8. CLEMASTINE FUMARATE [Concomitant]
     Dates: start: 20100706, end: 20100712

REACTIONS (1)
  - HYPERGLYCAEMIA [None]
